FAERS Safety Report 8454718-4 (Version None)
Quarter: 2012Q2

REPORT INFORMATION
  Report Type: 
  Country: None (occurrence: None)
  Receive Date: 20120614
  Receipt Date: 20120529
  Transmission Date: 20120825
  Serious: Yes (Other)
  Sender: FDA-Public Use
  Company Number: JPI-P-019364

PATIENT
  Age: 33 Year
  Sex: Female
  Weight: 142.8831 kg

DRUGS (29)
  1. DEXTRO-STAT (DEXTROAMPHETAMINE) [Concomitant]
  2. ONDANSETRON (ZOFRAN) [Concomitant]
  3. DOMPERIDONE [Concomitant]
  4. ALBUTEROL [Concomitant]
  5. ZANTAC [Concomitant]
  6. PROVIGIL [Concomitant]
  7. SIMVASTATIN [Concomitant]
  8. SINGULAIR [Concomitant]
  9. SYNTHROID [Concomitant]
  10. VERAMYST (FLUTICASONE) [Concomitant]
  11. XYREM [Suspect]
     Indication: CATAPLEXY
     Dosage: SEE IMAGE
     Route: 048
     Dates: start: 20080623
  12. XYREM [Suspect]
     Indication: CATAPLEXY
     Dosage: SEE IMAGE
     Route: 048
     Dates: start: 20090603
  13. INDERAL [Suspect]
     Indication: MIGRAINE
     Dates: start: 20111001
  14. ADVAIR (FLUTICASONE W/SALMETEROL) [Concomitant]
  15. CLONAZEPAM [Concomitant]
  16. REQUIP [Concomitant]
  17. PERCOCET (OXYCODONE W/ ACETAMINOPHEN) [Concomitant]
  18. NEXIUM [Concomitant]
  19. COMPAZINE [Concomitant]
  20. CETIRIZINE [Concomitant]
  21. CLINDAMYCIN [Suspect]
     Indication: BRONCHITIS
     Dates: start: 20110901
  22. AMERGE [Concomitant]
  23. GEODON [Concomitant]
  24. MOMETASONE/FORMOTEROL [Concomitant]
  25. TOPAMAX [Suspect]
     Indication: MIGRAINE
     Dates: start: 20110101
  26. VENLAFAXINE [Concomitant]
  27. ZYRTEC [Concomitant]
  28. METFORMIN HCL [Concomitant]
  29. REGLAN [Concomitant]

REACTIONS (24)
  - DRUG HYPERSENSITIVITY [None]
  - GASTRIC DISORDER [None]
  - CSF VOLUME INCREASED [None]
  - FOOD ALLERGY [None]
  - VOMITING [None]
  - WEIGHT INCREASED [None]
  - PILOERECTION [None]
  - HYPERHIDROSIS [None]
  - CONDITION AGGRAVATED [None]
  - FEELING HOT [None]
  - PARAESTHESIA [None]
  - THERAPEUTIC RESPONSE DECREASED [None]
  - FOOD CRAVING [None]
  - INITIAL INSOMNIA [None]
  - URTICARIA [None]
  - DEPRESSION [None]
  - DYSPNOEA [None]
  - BRONCHITIS [None]
  - NAUSEA [None]
  - FEELING ABNORMAL [None]
  - MIGRAINE [None]
  - FLUSHING [None]
  - PARASOMNIA [None]
  - MULTIPLE ALLERGIES [None]
